FAERS Safety Report 5429767-0 (Version None)
Quarter: 2007Q3

REPORT INFORMATION
  Report Type: 
  Country: None (occurrence: None)
  Receive Date: 20070829
  Receipt Date: 20070615
  Transmission Date: 20080115
  Serious: No
  Sender: FDA-Public Use
  Company Number: A0650627A

PATIENT
  Sex: Male

DRUGS (3)
  1. ESKALITH [Suspect]
     Dosage: 300MG FOUR TIMES PER DAY
     Route: 048
     Dates: start: 19830101, end: 20050801
  2. LITHIUM CARBONATE [Suspect]
  3. DIAZEPAM [Concomitant]

REACTIONS (5)
  - AORTIC DILATATION [None]
  - BIPOLAR DISORDER [None]
  - HYPERTENSION [None]
  - PERFORMANCE STATUS DECREASED [None]
  - WEIGHT INCREASED [None]
